FAERS Safety Report 4554110-9 (Version None)
Quarter: 2005Q1

REPORT INFORMATION
  Report Type: 
  Country: None (occurrence: None)
  Receive Date: 20050118
  Receipt Date: 20020204
  Transmission Date: 20050727
  Serious: Yes (Hospitalization, Disabling)
  Sender: FDA-Public Use
  Company Number: US-MERCK-0202USA00319

PATIENT
  Age: 55 Year
  Sex: Male

DRUGS (4)
  1. VIOXX [Suspect]
     Indication: BACK PAIN
     Route: 048
     Dates: start: 20010726, end: 20011026
  2. PRILOSEC [Concomitant]
     Route: 065
  3. FLONASE [Concomitant]
     Route: 065
  4. BACLOFEN [Concomitant]
     Route: 065

REACTIONS (8)
  - BLOOD CHOLESTEROL INCREASED [None]
  - CEREBRAL INFARCTION [None]
  - CHEST PAIN [None]
  - DRUG INEFFECTIVE [None]
  - EMBOLIC STROKE [None]
  - PROSTATIC SPECIFIC ANTIGEN INCREASED [None]
  - VENTRICULAR HYPERTROPHY [None]
  - VERTEBROBASILAR INSUFFICIENCY [None]
